FAERS Safety Report 24151953 (Version 1)
Quarter: 2024Q3

REPORT INFORMATION
  Report Type: Spontaneous
  Country: US (occurrence: US)
  Receive Date: 20240730
  Receipt Date: 20240730
  Transmission Date: 20241017
  Serious: No
  Sender: ROCHE
  Company Number: US-ROCHE-3573409

PATIENT
  Sex: Female
  Weight: 64.86 kg

DRUGS (7)
  1. ACTEMRA [Suspect]
     Active Substance: TOCILIZUMAB
     Indication: Rheumatoid arthritis
     Route: 058
     Dates: start: 2023, end: 20240524
  2. ACTEMRA [Suspect]
     Active Substance: TOCILIZUMAB
     Indication: Pulmonary fibrosis
  3. OMEPRAZOLE [Concomitant]
     Active Substance: OMEPRAZOLE
     Indication: Gastrooesophageal reflux disease
     Route: 048
  4. LEFLUNOMIDE [Concomitant]
     Active Substance: LEFLUNOMIDE
     Indication: Rheumatoid arthritis
     Dosage: STARTED BEFORE ACTEMRA
     Route: 048
  5. OXYGEN [Concomitant]
     Active Substance: OXYGEN
     Indication: Pulmonary fibrosis
     Dosage: STARTED 4 YEARS AGO - IT IS CONTINUOUS DELIVERY 24/7
     Route: 055
  6. IRON [Concomitant]
     Active Substance: IRON
     Indication: Rheumatoid arthritis
     Dosage: STARTED BEFORE ACTEMRA
     Route: 048
  7. CLARITIN [Concomitant]
     Active Substance: LORATADINE
     Indication: Seasonal allergy
     Dosage: STARTED BEFORE ACTEMRA
     Route: 048

REACTIONS (1)
  - Scar [Unknown]
